FAERS Safety Report 19650103 (Version 1)
Quarter: 2021Q3

REPORT INFORMATION
  Report Type: Spontaneous
  Country: DE (occurrence: DE)
  Receive Date: 20210803
  Receipt Date: 20210803
  Transmission Date: 20211014
  Serious: Yes (Other)
  Sender: FDA-Public Use
  Company Number: NVSC2021DE143855

PATIENT
  Sex: Female

DRUGS (2)
  1. TACROLIMUS. [Suspect]
     Active Substance: TACROLIMUS
     Indication: STEM CELL TRANSPLANT
     Dosage: UNK
     Route: 065
  2. GILTERITINIB [Suspect]
     Active Substance: GILTERITINIB
     Indication: ACUTE MYELOID LEUKAEMIA
     Dosage: 40 MG, UNKNOWN FREQ
     Route: 065
     Dates: start: 20210518

REACTIONS (8)
  - Deafness [Recovered/Resolved]
  - Euthyroid sick syndrome [Unknown]
  - Hypertension [Unknown]
  - Underdose [Unknown]
  - Off label use [Unknown]
  - Product use in unapproved indication [Unknown]
  - Cataract [Recovered/Resolved]
  - Visual impairment [Recovered/Resolved]

NARRATIVE: CASE EVENT DATE: 202105
